FAERS Safety Report 26208083 (Version 1)
Quarter: 2025Q4

REPORT INFORMATION
  Report Type: Spontaneous
  Country: US (occurrence: None)
  Receive Date: 20251226
  Receipt Date: 20251226
  Transmission Date: 20260117
  Serious: Yes (Life-Threatening, Hospitalization, Disabling)
  Sender: FDA-CTU
  Company Number: None

PATIENT
  Age: 57 Year
  Sex: Female
  Weight: 55.35 kg

DRUGS (11)
  1. FLUOROURACIL CREAM [Suspect]
     Active Substance: FLUOROURACIL
     Indication: Squamous cell carcinoma
     Dosage: 1 CREAM TWICE A DAY TOPICAL
     Route: 061
     Dates: start: 20250405, end: 20250901
  2. LEVOFLOXACIN [Suspect]
     Active Substance: LEVOFLOXACIN
  3. TRAZODONE [Suspect]
     Active Substance: TRAZODONE HYDROCHLORIDE
  4. LINEZOLID [Suspect]
     Active Substance: LINEZOLID
  5. BETADINE [Suspect]
     Active Substance: POVIDONE-IODINE
  6. VASELINE PURE [Suspect]
     Active Substance: PETROLATUM
  7. THYROID [Concomitant]
     Active Substance: LEVOTHYROXINE\LIOTHYRONINE
  8. B12 [Concomitant]
  9. VENTOLIN [Concomitant]
     Active Substance: ALBUTEROL SULFATE
  10. ESOMEPRAZOLE [Concomitant]
     Active Substance: ESOMEPRAZOLE
  11. VITAMIN C [Concomitant]
     Active Substance: ASCORBIC ACID

REACTIONS (18)
  - Nasal septum ulceration [None]
  - Epistaxis [None]
  - Nasal crusting [None]
  - Ocular hyperaemia [None]
  - Visual impairment [None]
  - Eyelid irritation [None]
  - Scleroderma [None]
  - Nasal discomfort [None]
  - Vision blurred [None]
  - Photophobia [None]
  - Dizziness [None]
  - Dizziness [None]
  - Head discomfort [None]
  - Oedema [None]
  - Oedema peripheral [None]
  - Swelling of nose [None]
  - Skin discolouration [None]
  - Skin hypertrophy [None]

NARRATIVE: CASE EVENT DATE: 20250901
